FAERS Safety Report 22973872 (Version 2)
Quarter: 2023Q4

REPORT INFORMATION
  Report Type: Spontaneous
  Country: JP (occurrence: JP)
  Receive Date: 20230922
  Receipt Date: 20231221
  Transmission Date: 20240110
  Serious: Yes (Death, Other)
  Sender: FDA-Public Use
  Company Number: JP-ONO-2023JP023636

PATIENT
  Age: 7 Decade

DRUGS (1)
  1. OPDIVO [Suspect]
     Active Substance: NIVOLUMAB
     Indication: Non-small cell lung cancer recurrent
     Dosage: UNK
     Route: 042

REACTIONS (2)
  - Cardiac dysfunction [Fatal]
  - Myocarditis [Fatal]
